FAERS Safety Report 4312806-8 (Version None)
Quarter: 2004Q1

REPORT INFORMATION
  Report Type: 
  Country: None (occurrence: None)
  Receive Date: 20040304
  Receipt Date: 20040226
  Transmission Date: 20041129
  Serious: Yes (Death)
  Sender: FDA-Public Use
  Company Number: D01200400630

PATIENT
  Age: 61 Year
  Sex: Female
  Weight: 121 kg

DRUGS (1)
  1. CISPLATIN [Suspect]
     Indication: CARCINOMA
     Dosage: 100 MG/M2 OTHER - INTRAVENOUS NOS
     Route: 042
     Dates: start: 20040105, end: 20040105

REACTIONS (16)
  - CARDIAC FAILURE [None]
  - CHOLELITHIASIS [None]
  - COMPUTERISED TOMOGRAM ABNORMAL [None]
  - DEHYDRATION [None]
  - HEPATIC FUNCTION ABNORMAL [None]
  - MOUTH HAEMORRHAGE [None]
  - MULTI-ORGAN FAILURE [None]
  - NEPHROLITHIASIS [None]
  - PNEUMONIA ASPIRATION [None]
  - RADIATION MUCOSITIS [None]
  - RENAL FAILURE [None]
  - SEPSIS [None]
  - SOFT TISSUE DISORDER [None]
  - SPLENOMEGALY [None]
  - THROMBOCYTOPENIA [None]
  - UTERINE LEIOMYOMA [None]
